FAERS Safety Report 8297654-9 (Version None)
Quarter: 2012Q2

REPORT INFORMATION
  Report Type: 
  Country: None (occurrence: None)
  Receive Date: 20120419
  Receipt Date: 20120411
  Transmission Date: 20120825
  Serious: Yes (Life-Threatening, Hospitalization)
  Sender: FDA-Public Use
  Company Number: JP-CELGENEUS-087-21660-12040749

PATIENT
  Age: 59 Year
  Sex: Female
  Weight: 63 kg

DRUGS (4)
  1. ABRAXANE [Suspect]
     Indication: BREAST CANCER
     Dosage: 288 MILLIGRAM
     Route: 041
     Dates: start: 20120323, end: 20120323
  2. FAMOSTAGINE-D [Concomitant]
     Dosage: 40 MILLIGRAM
     Route: 048
     Dates: start: 20120323
  3. SODIUM CHLORIDE [Concomitant]
     Route: 041
  4. DEXAMETHASONE SODIUM PHOSPHATE [Concomitant]
     Dosage: 6.6 MILLIGRAM
     Route: 041
     Dates: start: 20120323, end: 20120323

REACTIONS (5)
  - INSOMNIA [None]
  - BACK PAIN [None]
  - ANAPHYLACTIC SHOCK [None]
  - PYREXIA [None]
  - VOMITING [None]
